FAERS Safety Report 9478276 (Version 2)
Quarter: 2014Q2

REPORT INFORMATION
  Report Type: Spontaneous
  Country: FR (occurrence: FR)
  Receive Date: 20130827
  Receipt Date: 20140613
  Transmission Date: 20141212
  Serious: Yes (Other)
  Sender: FDA-Public Use
  Company Number: FR-GE HEALTHCARE MEDICAL DIAGNOSTICS-OMPQ-PR-1308S-1038

PATIENT
  Age: 60 Year
  Sex: Male

DRUGS (8)
  1. OMNIPAQUE [Suspect]
     Indication: PRODUCT USED FOR UNKNOWN INDICATION
     Dosage: DOSE NOT REPORTED
     Route: 042
     Dates: start: 20130710, end: 20130710
  2. OMNIPAQUE [Suspect]
     Indication: DIAGNOSTIC PROCEDURE
  3. SPECIAFOLDINE [Concomitant]
  4. INEXIUM [Concomitant]
  5. INNOHEP [Concomitant]
  6. PRIMPERAN [Concomitant]
  7. ALIMTA [Concomitant]
     Route: 042
     Dates: start: 20130712, end: 20130712
  8. GRANOCYTE [Concomitant]
     Dates: start: 20130715, end: 20130715

REACTIONS (1)
  - Dermatitis bullous [Recovered/Resolved]
